FAERS Safety Report 22094745 (Version 1)
Quarter: 2023Q1

REPORT INFORMATION
  Report Type: Spontaneous
  Country: GB (occurrence: GB)
  Receive Date: 20230314
  Receipt Date: 20230314
  Transmission Date: 20230417
  Serious: Yes (Other)
  Sender: FDA-Public Use
  Company Number: GB-ANIPHARMA-2023-UK-000064

PATIENT
  Sex: Female

DRUGS (3)
  1. ARIMIDEX [Suspect]
     Active Substance: ANASTROZOLE
     Indication: Hormone receptor positive HER2 negative breast cancer
     Route: 048
     Dates: start: 2013
  2. CYCLIN-DEPENDENT KINASE (CDK) INHIBITORS [Concomitant]
     Route: 065
     Dates: start: 202112
  3. SELECTIVE ESTROGEN RECEPTOR MODULATORS [Concomitant]
     Route: 048
     Dates: start: 202112

REACTIONS (2)
  - Malignant neoplasm progression [Unknown]
  - Hepatic lesion [Unknown]

NARRATIVE: CASE EVENT DATE: 20230201
